FAERS Safety Report 18576252 (Version 2)
Quarter: 2020Q4

REPORT INFORMATION
  Report Type: Spontaneous
  Country: CN (occurrence: CN)
  Receive Date: 20201203
  Receipt Date: 20201211
  Transmission Date: 20210114
  Serious: Yes (Death)
  Sender: FDA-Public Use
  Company Number: CN-INCYTE CORPORATION-2020IN011984

PATIENT

DRUGS (1)
  1. JAKAVI [Suspect]
     Active Substance: RUXOLITINIB
     Indication: PRIMARY MYELOFIBROSIS
     Dosage: 3 DF, BID (3 TABLETS/ TIME)
     Route: 048
     Dates: start: 201805, end: 202006

REACTIONS (2)
  - Gout [Recovering/Resolving]
  - Acute leukaemia [Fatal]

NARRATIVE: CASE EVENT DATE: 202004
